FAERS Safety Report 9144026 (Version 2)
Quarter: 2013Q2

REPORT INFORMATION
  Report Type: Spontaneous
  Country: GB (occurrence: GB)
  Receive Date: 20130306
  Receipt Date: 20130510
  Transmission Date: 20140414
  Serious: Yes (Hospitalization)
  Sender: FDA-Public Use
  Company Number: GB-AMGEN-GBRSP2013013222

PATIENT
  Age: 77 Year
  Sex: Female

DRUGS (12)
  1. PROLIA [Suspect]
     Indication: OSTEOPOROSIS
     Dosage: UNK
     Dates: start: 20120530
  2. CALCIUM [Concomitant]
  3. VITAMIN D /00107901/ [Concomitant]
  4. BISOPROLOL [Concomitant]
     Dosage: 2.5 MG, UNK
  5. DIGOXIN [Concomitant]
     Dosage: 6.25 MUG, UNK
  6. AMIODARONE [Concomitant]
     Dosage: 200 MG, UNK
  7. OMEPRAZOLE [Concomitant]
     Dosage: 20 MG, UNK
  8. ASPIRIN [Concomitant]
     Dosage: 75 MG, UNK
  9. SIMVASTATIN [Concomitant]
     Dosage: 20 MG, UNK
  10. GLICLAZIDE [Concomitant]
     Dosage: 160 MG, UNK
  11. FUROSEMIDE [Concomitant]
     Dosage: 20 MG, UNK
  12. ADCAL                              /00056901/ [Concomitant]
     Dosage: UNK UNK, BID

REACTIONS (8)
  - Vitamin D decreased [Unknown]
  - Laceration [Unknown]
  - Hip fracture [Unknown]
  - Fall [Unknown]
  - Blood calcium decreased [Unknown]
  - Bedridden [Unknown]
  - Malaise [Recovered/Resolved]
  - Tremor [Unknown]
